FAERS Safety Report 5383280-8 (Version None)
Quarter: 2007Q3

REPORT INFORMATION
  Report Type: 
  Country: None (occurrence: None)
  Receive Date: 20070710
  Receipt Date: 20070629
  Transmission Date: 20080115
  Serious: Yes (Other)
  Sender: FDA-Public Use
  Company Number: US-PFIZER INC-2007043702

PATIENT
  Sex: Male
  Weight: 68 kg

DRUGS (2)
  1. DETROL LA [Suspect]
     Indication: HYPERTONIC BLADDER
     Dates: start: 20070601, end: 20070601
  2. OXYBUTYNIN CHLORIDE [Suspect]
     Dates: start: 20070606, end: 20070601

REACTIONS (3)
  - CHEMOTHERAPY [None]
  - DRUG INEFFECTIVE [None]
  - NOCTURIA [None]
